FAERS Safety Report 12386699 (Version 1)
Quarter: 2016Q2

REPORT INFORMATION
  Report Type: Spontaneous
  Country: US (occurrence: US)
  Receive Date: 20160519
  Receipt Date: 20160519
  Transmission Date: 20160815
  Serious: Yes (Other)
  Sender: FDA-Public Use
  Company Number: ADR-2015-01329

PATIENT
  Age: 61 Year
  Sex: Female

DRUGS (4)
  1. NORCO [Suspect]
     Active Substance: ACETAMINOPHEN\HYDROCODONE BITARTRATE
     Dosage: 10/325
     Route: 048
  2. CLONIDINE. [Suspect]
     Active Substance: CLONIDINE
     Route: 037
  3. COMPOUNDED BACLOFEN [Suspect]
     Active Substance: BACLOFEN
     Route: 037
  4. MORPHINE [Suspect]
     Active Substance: MORPHINE
     Dosage: 8.946 MG/DAY
     Route: 037

REACTIONS (5)
  - Incision site complication [Unknown]
  - Medical device site discharge [Unknown]
  - Implant site extravasation [Unknown]
  - Bacterial test positive [Unknown]
  - Medical device site infection [Unknown]

NARRATIVE: CASE EVENT DATE: 20150402
